FAERS Safety Report 13263113 (Version 1)
Quarter: 2017Q1

REPORT INFORMATION
  Report Type: Spontaneous
  Country: US (occurrence: US)
  Receive Date: 20170221
  Receipt Date: 20170221
  Transmission Date: 20170428
  Serious: No
  Sender: FDA-Public Use
  Company Number: None

PATIENT
  Age: 60 Year
  Sex: Female

DRUGS (4)
  1. ORENCIA [Suspect]
     Active Substance: ABATACEPT
     Indication: ARTHROPATHY
  2. ORENCIA [Suspect]
     Active Substance: ABATACEPT
     Indication: ESSENTIAL HYPERTENSION
  3. ORENCIA [Suspect]
     Active Substance: ABATACEPT
     Indication: CARDIAC DISORDER
  4. ORENCIA [Suspect]
     Active Substance: ABATACEPT
     Indication: INSOMNIA

REACTIONS (5)
  - Skin exfoliation [None]
  - Rash erythematous [None]
  - Infection [None]
  - Rash pruritic [None]
  - Drug dose omission [None]

NARRATIVE: CASE EVENT DATE: 20170221
